FAERS Safety Report 4607328-0 (Version None)
Quarter: 2005Q1

REPORT INFORMATION
  Report Type: 
  Country: None (occurrence: None)
  Receive Date: 20050309
  Receipt Date: 20050228
  Transmission Date: 20050727
  Serious: Yes (Other)
  Sender: FDA-Public Use
  Company Number: GBWYE464228FEB05

PATIENT
  Age: 15 Year
  Sex: Male

DRUGS (2)
  1. TAZOCIN (PIPERACILLIN/TAZOBACTAM, INJECTION) [Suspect]
     Dosage: INTRAVENOUS
     Route: 042
  2. GENTAMYCIN-MP (GENTAMICIN SULFATE) [Concomitant]

REACTIONS (2)
  - CHILLS [None]
  - HYPERPYREXIA [None]
